FAERS Safety Report 19765922 (Version 1)
Quarter: 2021Q3

REPORT INFORMATION
  Report Type: Report from Study
  Country: None (occurrence: US)
  Receive Date: 20210831
  Receipt Date: 20210831
  Transmission Date: 20211014
  Serious: Yes (Hospitalization)
  Sender: FDA-Public Use
  Company Number: US-ABBVIE-21K-163-4056692-00

PATIENT
  Age: 40 Year
  Sex: Female

DRUGS (2)
  1. JANSSEN COVID?19 VACCINE [Suspect]
     Active Substance: AD26.COV2.S
     Indication: COVID-19 IMMUNISATION
     Dosage: FIRST DOSE?JOHNSON AND JOHNSON
     Route: 030
     Dates: start: 20210801, end: 20210801
  2. HUMIRA [Suspect]
     Active Substance: ADALIMUMAB
     Indication: COLITIS ULCERATIVE
     Dosage: CF
     Route: 058
     Dates: start: 20210727

REACTIONS (5)
  - Abdominal pain [Recovering/Resolving]
  - Rectal haemorrhage [Recovering/Resolving]
  - White blood cell count increased [Recovering/Resolving]
  - Haematochezia [Recovering/Resolving]
  - Thrombosis [Recovering/Resolving]

NARRATIVE: CASE EVENT DATE: 202108
